FAERS Safety Report 16668016 (Version 1)
Quarter: 2019Q3

REPORT INFORMATION
  Report Type: Spontaneous
  Country: IT (occurrence: IT)
  Receive Date: 20190805
  Receipt Date: 20190805
  Transmission Date: 20191004
  Serious: Yes (Hospitalization)
  Sender: FDA-Public Use
  Company Number: IT-TEVA-2019-IT-1087120

PATIENT
  Age: 50 Year
  Sex: Male

DRUGS (7)
  1. ROSUVASTATIN. [Concomitant]
     Active Substance: ROSUVASTATIN
     Dosage: 40 MILLIGRAM DAILY;
     Route: 065
  2. PRASUGREL. [Concomitant]
     Active Substance: PRASUGREL
     Dosage: 10 MILLIGRAM DAILY;
     Route: 065
  3. ENALAPRIL [Concomitant]
     Active Substance: ENALAPRIL
     Route: 065
  4. ACETILSALICILIC ACID [Concomitant]
     Dosage: 100 MILLIGRAM DAILY;
     Route: 065
  5. METFORMIN [Concomitant]
     Active Substance: METFORMIN HYDROCHLORIDE
     Dosage: 2000 MILLIGRAM DAILY;
     Route: 065
  6. AMOXICILLIN W/CLAVULANIC ACID [Suspect]
     Active Substance: AMOXICILLIN\CLAVULANIC ACID
     Indication: TOOTH ABSCESS
     Route: 065
  7. METOPROLOL. [Suspect]
     Active Substance: METOPROLOL
     Dosage: 100 MILLIGRAM DAILY;
     Route: 065

REACTIONS (4)
  - Bronchospasm [Recovered/Resolved]
  - Vascular stent thrombosis [Recovered/Resolved]
  - Kounis syndrome [Recovered/Resolved]
  - Dermatitis exfoliative generalised [Recovered/Resolved]
